FAERS Safety Report 4396188-1 (Version None)
Quarter: 2004Q3

REPORT INFORMATION
  Report Type: 
  Country: None (occurrence: None)
  Receive Date: 20040709
  Receipt Date: 20040630
  Transmission Date: 20050211
  Serious: Yes (Other)
  Sender: FDA-Public Use
  Company Number: US-JNJFOC-20040700765

PATIENT
  Age: 8 Month
  Sex: Male
  Weight: 15.8759 kg

DRUGS (1)
  1. CHILDREN'S TYLENOL SUSPENSION LIQUID CHERRY (ACETAMINOPHEN) SUSPENSION [Suspect]
     Indication: TEETHING
     Dosage: ORAL
     Route: 048
     Dates: start: 20040628, end: 20040628

REACTIONS (4)
  - CYANOSIS [None]
  - RASH MACULAR [None]
  - RESPIRATORY ARREST [None]
  - SKIN IRRITATION [None]
